FAERS Safety Report 6443215-3 (Version None)
Quarter: 2009Q4

REPORT INFORMATION
  Report Type: 
  Country: None (occurrence: None)
  Receive Date: 20091117
  Receipt Date: 20091109
  Transmission Date: 20100525
  Serious: Yes (Other)
  Sender: FDA-Public Use
  Company Number: BR-ASTRAZENECA-2009UW19532

PATIENT
  Age: 55 Year
  Sex: Female

DRUGS (4)
  1. ZOMIG [Suspect]
     Indication: MIGRAINE
     Route: 048
     Dates: start: 20090601
  2. ZOMIG [Suspect]
     Route: 048
     Dates: start: 20091107, end: 20091107
  3. FAMOTIDINE [Concomitant]
     Route: 048
     Dates: start: 20090601
  4. DOMPERIDONE [Concomitant]
     Route: 048
     Dates: start: 20090601

REACTIONS (8)
  - DEPRESSION [None]
  - DIZZINESS [None]
  - DRUG INEFFECTIVE [None]
  - HEADACHE [None]
  - INSOMNIA [None]
  - MIGRAINE [None]
  - PAIN [None]
  - VOMITING [None]
